FAERS Safety Report 5991217-3 (Version None)
Quarter: 2008Q4

REPORT INFORMATION
  Report Type: 
  Country: None (occurrence: None)
  Receive Date: 20081211
  Receipt Date: 20081203
  Transmission Date: 20090506
  Serious: Yes (Hospitalization, Other)
  Sender: FDA-Public Use
  Company Number: US-ELI_LILLY_AND_COMPANY-US200812001046

PATIENT
  Age: 74 Year
  Sex: Female

DRUGS (5)
  1. HUMALOG [Suspect]
     Dosage: UNK, UNK
     Dates: end: 20060601
  2. HUMALOG [Suspect]
     Dosage: 10 U, OTHER
     Dates: start: 20081201
  3. NOVOLOG [Concomitant]
     Dosage: 10 U, OTHER
     Dates: start: 20060601, end: 20081201
  4. NOVOLOG [Concomitant]
     Dosage: UNK, AS NEEDED
     Dates: start: 20060601, end: 20081201
  5. LANTUS [Concomitant]
     Indication: DIABETES MELLITUS
     Dosage: 56 U, DAILY (1/D)

REACTIONS (4)
  - BLOOD GLUCOSE DECREASED [None]
  - BLOOD GLUCOSE INCREASED [None]
  - CEREBROVASCULAR ACCIDENT [None]
  - CYSTITIS [None]
